FAERS Safety Report 15504754 (Version 1)
Quarter: 2018Q4

REPORT INFORMATION
  Report Type: Spontaneous
  Country: US (occurrence: US)
  Receive Date: 20181016
  Receipt Date: 20181016
  Transmission Date: 20190205
  Serious: Yes (Other)
  Sender: FDA-Public Use
  Company Number: None

PATIENT
  Age: 1 Day
  Sex: Female
  Weight: 69.75 kg

DRUGS (1)
  1. HYOSCYAMINE. [Suspect]
     Active Substance: HYOSCYAMINE
     Indication: OESOPHAGEAL SPASM
     Route: 060
     Dates: start: 20181015, end: 20181016

REACTIONS (3)
  - Product physical issue [None]
  - Malabsorption from administration site [None]
  - Product solubility abnormal [None]

NARRATIVE: CASE EVENT DATE: 19561016
